FAERS Safety Report 9704328 (Version 1)
Quarter: 2013Q4

REPORT INFORMATION
  Report Type: Spontaneous
  Country: US (occurrence: None)
  Receive Date: 20131121
  Receipt Date: 20131121
  Transmission Date: 20140711
  Serious: Yes (Life-Threatening, Hospitalization, Disabling)
  Sender: FDA-Public Use
  Company Number: None

PATIENT
  Age: 70 Year
  Sex: Male
  Weight: 78 kg

DRUGS (5)
  1. AVASTIN [Suspect]
     Indication: LUNG CARCINOMA CELL TYPE UNSPECIFIED STAGE III
     Route: 042
     Dates: start: 20131022
  2. LOSARTAN [Concomitant]
  3. LEVOTHYROXINE [Concomitant]
  4. SIMVASTATIN [Concomitant]
  5. CARBOPLATIN-PACLITAXEL-BEVACIZUMAB [Concomitant]

REACTIONS (2)
  - Cerebral haemorrhage [None]
  - Thrombocytopenia [None]
